FAERS Safety Report 23524813 (Version 1)
Quarter: 2024Q1

REPORT INFORMATION
  Report Type: Spontaneous
  Country: GB (occurrence: GB)
  Receive Date: 20240215
  Receipt Date: 20240215
  Transmission Date: 20240410
  Serious: Yes (Hospitalization, Other)
  Sender: FDA-Public Use
  Company Number: GB-CELLTRION INC.-2024GB003349

PATIENT

DRUGS (3)
  1. INFLIXIMAB [Suspect]
     Active Substance: INFLIXIMAB
     Indication: Colitis ulcerative
     Dosage: 120 MG PRE FILLED PEN
     Route: 058
     Dates: start: 202211
  2. INFLIXIMAB [Suspect]
     Active Substance: INFLIXIMAB
     Indication: Crohn^s disease
     Dosage: UNK
     Dates: start: 20230104
  3. INFLIXIMAB [Suspect]
     Active Substance: INFLIXIMAB
     Dosage: 120 MG PRE FILLED PEN
     Route: 058
     Dates: start: 20240130

REACTIONS (6)
  - Anal fistula [Unknown]
  - Rheumatoid arthritis [Unknown]
  - Malaise [Unknown]
  - Pruritus [Unknown]
  - Injection site reaction [Unknown]
  - Intentional dose omission [Unknown]
